FAERS Safety Report 24970134 (Version 1)
Quarter: 2025Q1

REPORT INFORMATION
  Report Type: Spontaneous
  Country: IN (occurrence: IN)
  Receive Date: 20250214
  Receipt Date: 20250214
  Transmission Date: 20250408
  Serious: Yes (Life-Threatening, Hospitalization, Other)
  Sender: RANBAXY
  Company Number: IN-SUN PHARMACEUTICAL INDUSTRIES LTD.-2025R1-493569

PATIENT
  Age: 18 Year
  Sex: Female

DRUGS (2)
  1. AMLODIPINE [Suspect]
     Active Substance: AMLODIPINE BESYLATE
     Indication: Pulmonary renal syndrome
     Route: 065
  2. ERYTHROPOIETIN [Suspect]
     Active Substance: ERYTHROPOIETIN
     Indication: Pulmonary renal syndrome
     Route: 058

REACTIONS (5)
  - Condition aggravated [Unknown]
  - Dyspnoea [Unknown]
  - Interstitial lung disease [Unknown]
  - IgA nephropathy [Unknown]
  - Pulmonary haemorrhage [Unknown]
